FAERS Safety Report 17200777 (Version 2)
Quarter: 2024Q3

REPORT INFORMATION
  Report Type: Spontaneous
  Country: DK (occurrence: DK)
  Receive Date: 20191226
  Receipt Date: 20240726
  Transmission Date: 20241016
  Serious: Yes (Death, Other)
  Sender: MYLAN
  Company Number: DK-EMA-DD-20190114-SHARMA_D2-095940

PATIENT
  Age: 72 Year
  Sex: Female

DRUGS (9)
  1. ZELDOX [Suspect]
     Active Substance: ZIPRASIDONE
     Indication: Schizoaffective disorder
     Dosage: 80 MILLIGRAM, QD
     Route: 048
     Dates: end: 20111023
  2. MIRTAZAPINE [Suspect]
     Active Substance: MIRTAZAPINE
     Indication: Schizoaffective disorder
     Dosage: 30 MILLIGRAM, QD
     Route: 048
     Dates: start: 2011, end: 20111023
  3. CIPRALEX [Suspect]
     Active Substance: ESCITALOPRAM OXALATE
     Indication: Schizoaffective disorder
     Dosage: 30 MG, QD (DAILY DOSE OF 1 TABLET IN THE MORNING AND 1.5 TABLET IN THE EVENING)
     Route: 048
     Dates: end: 20111023
  4. LITHIUM CITRATE [Suspect]
     Active Substance: LITHIUM CITRATE
     Indication: Schizoaffective disorder
     Dosage: 1 DF (IN THE MORNING)
     Route: 048
     Dates: end: 20111023
  5. BENDROFLUMETHIAZIDE\POTASSIUM CHLORIDE [Concomitant]
     Active Substance: BENDROFLUMETHIAZIDE\POTASSIUM CHLORIDE
     Indication: Product used for unknown indication
     Dosage: 1 DOSAGE FORM, QD
     Route: 065
     Dates: end: 20111023
  6. ALPRAZOLAM [Concomitant]
     Active Substance: ALPRAZOLAM
     Indication: Product used for unknown indication
     Dosage: 0.5 MILLIGRAM, QD
     Route: 065
     Dates: end: 20111022
  7. FERROUS SULFATE [Concomitant]
     Active Substance: FERROUS SULFATE
     Indication: Product used for unknown indication
     Dosage: 100 MILLIGRAM, QD
     Route: 065
     Dates: end: 20111023
  8. AMLODIPINE [Concomitant]
     Active Substance: AMLODIPINE BESYLATE
     Indication: Product used for unknown indication
     Dosage: UNK
     Route: 065
  9. FRAGMIN [Concomitant]
     Active Substance: DALTEPARIN SODIUM
     Indication: Product used for unknown indication
     Dosage: UNK
     Route: 065

REACTIONS (17)
  - Lactic acidosis [Fatal]
  - Organ failure [Fatal]
  - Neuroleptic malignant syndrome [Fatal]
  - Cardiac hypertrophy [Fatal]
  - Renal failure [Fatal]
  - Hyperventilation [Fatal]
  - Lacunar infarction [Fatal]
  - Rhabdomyolysis [Fatal]
  - Hepatic cirrhosis [Fatal]
  - Confusional state [Fatal]
  - Pyrexia [Fatal]
  - Humerus fracture [Not Recovered/Not Resolved]
  - Urinary tract infection [Unknown]
  - Fall [Recovered/Resolved]
  - Hypertension [Not Recovered/Not Resolved]
  - Dyspnoea [Not Recovered/Not Resolved]
  - Constipation [Unknown]

NARRATIVE: CASE EVENT DATE: 20111021
